FAERS Safety Report 18207787 (Version 1)
Quarter: 2020Q3

REPORT INFORMATION
  Report Type: Spontaneous
  Country: FI (occurrence: FI)
  Receive Date: 20200828
  Receipt Date: 20200828
  Transmission Date: 20201103
  Serious: Yes (Hospitalization)
  Sender: FDA-Public Use
  Company Number: FI-BAYER-2020-179165

PATIENT
  Age: 60 Year
  Sex: Male

DRUGS (10)
  1. CALMURIL [LACTIC ACID;UREA] [Concomitant]
     Dosage: AS NECESSARY
     Route: 061
  2. IMOCUR [BACTERIA NOS] [Concomitant]
     Dosage: AS NECESSARY
     Route: 048
  3. LOSATRIX COMP [Concomitant]
     Indication: HYPERTENSION
     Dosage: 1 DF DAILY
     Route: 048
  4. IMOVANE [Concomitant]
     Active Substance: ZOPICLONE
     Indication: INSOMNIA
     Dosage: AS NECESSARY
     Route: 048
  5. NEXAVAR [Suspect]
     Active Substance: SORAFENIB
     Indication: HEPATIC CANCER
     Dosage: 800 MG DAILY
     Route: 048
     Dates: start: 20191021, end: 20200728
  6. PRIMPERAN [Concomitant]
     Active Substance: METOCLOPRAMIDE HYDROCHLORIDE
     Indication: NAUSEA
     Dosage: AS NECESSARY
     Route: 048
  7. DIFORMIN [Concomitant]
     Active Substance: METFORMIN HYDROCHLORIDE
     Indication: TYPE 2 DIABETES MELLITUS
     Dosage: 500 MG DAILY
     Route: 048
     Dates: start: 20200702
  8. AMLODIPINE MESILATE MONOHYDRATE [Concomitant]
     Active Substance: AMLODIPINE MESYLATE
     Indication: HYPERTENSION
     Dosage: 7.5 MG DAILY
     Route: 048
  9. HYPOLOC [Concomitant]
     Indication: HYPERTENSION
     Dosage: 5 MG DAILY
     Route: 048
  10. KALEORID [Concomitant]
     Active Substance: POTASSIUM CHLORIDE
     Indication: HYPOKALAEMIA
     Dosage: 1 G DAILY
     Route: 048

REACTIONS (3)
  - Melaena [Not Recovered/Not Resolved]
  - Thrombocytopenia [Not Recovered/Not Resolved]
  - Transfusion [Not Recovered/Not Resolved]

NARRATIVE: CASE EVENT DATE: 20200729
